FAERS Safety Report 9571433 (Version 3)
Quarter: 2013Q4

REPORT INFORMATION
  Report Type: Report from Study
  Country: PL (occurrence: PL)
  Receive Date: 20131001
  Receipt Date: 20131023
  Transmission Date: 20140711
  Serious: Yes (Hospitalization)
  Sender: FDA-Public Use
  Company Number: PL-SANOFI-AVENTIS-2013SA093741

PATIENT
  Age: 57 Year
  Sex: Female
  Weight: 102 kg

DRUGS (8)
  1. MIPOMERSEN [Suspect]
     Indication: TYPE IIA HYPERLIPIDAEMIA
     Dates: start: 20130327
  2. BISOPROLOL [Concomitant]
     Indication: CORONARY ARTERY DISEASE
     Dates: start: 20120507
  3. SPIRONOLACTONE [Concomitant]
     Indication: PROPHYLAXIS
     Dates: start: 20120512
  4. RAMIPRIL [Concomitant]
     Indication: CORONARY ARTERY DISEASE
     Dates: start: 20120502
  5. RAMIPRIL [Concomitant]
     Indication: HYPERTENSION
     Dates: start: 20120502
  6. ATORVASTATIN [Concomitant]
     Indication: HYPERCHOLESTEROLAEMIA
     Dates: start: 20121203
  7. ASPIRIN [Concomitant]
     Indication: CORONARY ARTERY DISEASE
     Dates: start: 20020412
  8. KALII CHLORIDUM [Concomitant]
     Indication: PROPHYLAXIS
     Dates: start: 20130522

REACTIONS (1)
  - Gallbladder disorder [Not Recovered/Not Resolved]
